FAERS Safety Report 12961053 (Version 2)
Quarter: 2017Q1

REPORT INFORMATION
  Report Type: Report from Study
  Country: CA (occurrence: CA)
  Receive Date: 20161121
  Receipt Date: 20170310
  Transmission Date: 20170428
  Serious: Yes (Other)
  Sender: FDA-Public Use
  Company Number: CA-HLSUS-2016-CA-000616

PATIENT
  Age: 62 Year
  Sex: Female

DRUGS (11)
  1. SANIS-RANITIDINE [Concomitant]
     Dosage: 1 TABLET TWICE DAILY
     Route: 048
  2. CLOZARIL [Suspect]
     Active Substance: CLOZAPINE
     Dosage: 3 TABLETS AT BED TIME
     Route: 048
     Dates: start: 20020108, end: 20161101
  3. D-TABS 10,000 UNITS [Concomitant]
     Dosage: 1 TABLET ONCE A WEEK
     Dates: start: 20150604
  4. SANIS-OXYBUTYNIN [Concomitant]
     Dosage: 2 TABLETS BED TIME
     Route: 048
  5. BETADERM CREAM [Concomitant]
     Dosage: TWICE A DAY
     Route: 061
  6. FUCIDIN OINTMENT [Concomitant]
     Dosage: TWICE A DAY
     Route: 061
  7. ACETAMINOPHEN. [Concomitant]
     Active Substance: ACETAMINOPHEN
  8. SANIS-CITALOPRAM [Concomitant]
     Dosage: 1TABLET ONCE DAILY MORNING
  9. AURO-MIRTAZAPINE [Concomitant]
     Active Substance: MIRTAZAPINE
     Dosage: 1 TABLET BED TIME
     Route: 048
     Dates: start: 20160616
  10. PMS-BENZTROPINE [Concomitant]
     Dosage: 1 TABLET DAILY AS NEEDED
     Route: 048
  11. PMS-CLONAZEPAM [Concomitant]
     Active Substance: CLONAZEPAM
     Dosage: 1-AM, 1-AFTERNOON, 2-NIGHT

REACTIONS (10)
  - Personality disorder [Unknown]
  - Urinary tract infection [Unknown]
  - Stress urinary incontinence [Unknown]
  - Neutropenia [Unknown]
  - Gastrooesophageal reflux disease [Unknown]
  - Schizophrenia [Unknown]
  - Dermatitis contact [Unknown]
  - Chronic sinusitis [Unknown]
  - Constipation [Unknown]
  - Leukopenia [Unknown]

NARRATIVE: CASE EVENT DATE: 20170307
